FAERS Safety Report 4799687-3 (Version None)
Quarter: 2005Q4

REPORT INFORMATION
  Report Type: 
  Country: None (occurrence: None)
  Receive Date: 20051013
  Receipt Date: 20050927
  Transmission Date: 20060501
  Serious: Yes (Death, Life-Threatening)
  Sender: FDA-Public Use
  Company Number: 2005127028

PATIENT
  Age: 56 Year
  Sex: Male

DRUGS (5)
  1. GENOTROPIN [Suspect]
     Indication: HYPOPITUITARISM
     Dosage: 0.3 MG (0.3 MG, DAILY), SUBCUTANEOUS
     Route: 058
     Dates: start: 19960501, end: 20040801
  2. HYDROCORTISONE [Concomitant]
  3. TESTOSTERONE [Concomitant]
  4. LEVOTHYROXINE SODIUM [Concomitant]
  5. PANTOPRAZOL (PANTOPRAZOLE) [Concomitant]

REACTIONS (5)
  - LUNG SQUAMOUS CELL CARCINOMA STAGE UNSPECIFIED [None]
  - LYMPHADENOPATHY MEDIASTINAL [None]
  - METASTASES TO BONE [None]
  - NON-SMALL CELL LUNG CANCER STAGE IV [None]
  - OSTEOLYSIS [None]
